FAERS Safety Report 13340071 (Version 1)
Quarter: 2017Q1

REPORT INFORMATION
  Report Type: Spontaneous
  Country: FR (occurrence: FR)
  Receive Date: 20170316
  Receipt Date: 20170316
  Transmission Date: 20170428
  Serious: No
  Sender: FDA-Public Use
  Company Number: FR-LUPIN PHARMACEUTICALS INC.-2017-00787

PATIENT
  Age: 76 Year
  Sex: Male

DRUGS (4)
  1. CLINDAMYCIN. [Suspect]
     Active Substance: CLINDAMYCIN
     Indication: INTERVERTEBRAL DISCITIS
     Dosage: 600 MG,QID,
     Route: 048
  2. RIFAMPIN. [Suspect]
     Active Substance: RIFAMPIN
     Indication: INTERVERTEBRAL DISCITIS
     Dosage: UNK UNK,UNK,
     Route: 048
  3. CLOXACILLINE [Concomitant]
     Active Substance: CLOXACILLIN
     Indication: INTERVERTEBRAL DISCITIS
     Dosage: UNK UNK,UNK,
     Route: 065
  4. RIFAMPIN. [Suspect]
     Active Substance: RIFAMPIN
     Indication: STAPHYLOCOCCAL INFECTION

REACTIONS (2)
  - Drug interaction [Unknown]
  - Drug level decreased [Unknown]
